FAERS Safety Report 9648454 (Version 1)
Quarter: 2013Q4

REPORT INFORMATION
  Report Type: Spontaneous
  Country: FR (occurrence: FR)
  Receive Date: 20131028
  Receipt Date: 20131028
  Transmission Date: 20140711
  Serious: Yes (Hospitalization)
  Sender: FDA-Public Use
  Company Number: FR-ROCHE-1292070

PATIENT
  Age: 48 Year
  Sex: Female

DRUGS (7)
  1. HERCEPTIN [Suspect]
     Indication: BREAST CANCER METASTATIC
     Route: 042
     Dates: start: 20121205, end: 20121205
  2. TAXOTERE [Suspect]
     Indication: BREAST CANCER METASTATIC
     Route: 042
     Dates: start: 20121205, end: 20121205
  3. NEULASTA [Concomitant]
     Route: 065
     Dates: start: 20121206, end: 20121206
  4. AUGMENTIN [Concomitant]
     Route: 065
     Dates: start: 20121201, end: 20121207
  5. ZOPHREN [Concomitant]
     Route: 065
     Dates: start: 20121209
  6. KESTIN [Concomitant]
     Route: 065
     Dates: start: 20121209
  7. DAFALGAN CODEINE [Concomitant]
     Route: 065
     Dates: start: 20121209

REACTIONS (4)
  - Toxic skin eruption [Recovered/Resolved]
  - Pancytopenia [Recovered/Resolved]
  - Haemorrhage [Recovered/Resolved]
  - Bacterial sepsis [Recovered/Resolved]
